FAERS Safety Report 10199131 (Version 1)
Quarter: 2014Q2

REPORT INFORMATION
  Report Type: Spontaneous
  Country: US (occurrence: US)
  Receive Date: 20140527
  Receipt Date: 20140527
  Transmission Date: 20141212
  Serious: Yes (Other)
  Sender: FDA-Public Use
  Company Number: US-B.I. PHARMACEUTICALS,INC./RIDGEFIELD-2014-BI-22214BP

PATIENT
  Age: 63 Year
  Sex: Female
  Weight: 48 kg

DRUGS (5)
  1. AGGRENOX [Suspect]
     Indication: CEREBROVASCULAR ACCIDENT PROPHYLAXIS
     Dosage: STRENGTH: 25 MG / 200 MG; DAILY DOSE: 50MG/400MG
     Route: 048
     Dates: start: 201309, end: 20140427
  2. LEVOTHYROXINE [Concomitant]
     Indication: HYPOTHYROIDISM
     Dosage: 150 MCG
     Route: 048
  3. ESGIC [Concomitant]
     Indication: MIGRAINE
     Route: 065
     Dates: start: 1986
  4. ALLEGRA [Concomitant]
     Indication: SEASONAL ALLERGY
     Route: 048
     Dates: start: 2006
  5. MAXALT [Concomitant]
     Indication: MIGRAINE
     Route: 048
     Dates: start: 2008

REACTIONS (1)
  - Cerebrovascular accident [Recovered/Resolved]
